FAERS Safety Report 4753319-9 (Version None)
Quarter: 2005Q3

REPORT INFORMATION
  Report Type: 
  Country: None (occurrence: None)
  Receive Date: 20050824
  Receipt Date: 20050811
  Transmission Date: 20060218
  Serious: Yes (Life-Threatening, Hospitalization, Other)
  Sender: FDA-Public Use
  Company Number: 2005081166

PATIENT
  Age: 47 Year
  Sex: Female

DRUGS (10)
  1. CELEBREX [Suspect]
     Indication: ARTHRALGIA
     Dosage: UNKNOWN (1 IN 1 D), ORAL
     Route: 048
     Dates: end: 20040501
  2. BEXTRA [Suspect]
     Indication: ARTHRALGIA
     Dosage: UNKNOWN (1 IN 1 D), ORAL
     Route: 048
     Dates: start: 20030101, end: 20030101
  3. IMURAN [Suspect]
     Indication: CROHN'S DISEASE
     Dosage: UNKNOWN
     Route: 065
     Dates: start: 20040101, end: 20040101
  4. VITAMINS (VITAMINS) [Concomitant]
  5. AZULFIDINE [Concomitant]
  6. LOPERAMIDE HCL [Concomitant]
  7. AMBIEN [Concomitant]
  8. NEURONTIN [Concomitant]
  9. XANAX [Concomitant]
  10. PREVACID [Concomitant]

REACTIONS (18)
  - ARTERIAL OCCLUSIVE DISEASE [None]
  - BURNING SENSATION [None]
  - DIARRHOEA [None]
  - DYSPEPSIA [None]
  - EPISTAXIS [None]
  - EXOSTOSIS [None]
  - FULL BLOOD COUNT DECREASED [None]
  - GASTRIC ULCER HAEMORRHAGE [None]
  - HAEMOGLOBIN DECREASED [None]
  - LOSS OF CONSCIOUSNESS [None]
  - NASAL DRYNESS [None]
  - NAUSEA [None]
  - NERVE COMPRESSION [None]
  - PRURITUS [None]
  - SCRATCH [None]
  - TRANSIENT ISCHAEMIC ATTACK [None]
  - WEIGHT DECREASED [None]
  - WEIGHT INCREASED [None]
